FAERS Safety Report 6084098-3 (Version None)
Quarter: 2009Q1

REPORT INFORMATION
  Report Type: 
  Country: None (occurrence: None)
  Receive Date: 20090219
  Receipt Date: 20081218
  Transmission Date: 20090719
  Serious: Yes (Death, Life-Threatening, Hospitalization)
  Sender: FDA-Public Use
  Company Number: VN-MERCK-0902USA02798

PATIENT
  Age: 21 Month
  Sex: Male

DRUGS (4)
  1. PRIMAXIN [Suspect]
     Indication: INFECTION
     Route: 042
  2. CIPRO [Suspect]
     Indication: INFECTION
     Route: 042
  3. OXACILLIN SODIUM [Suspect]
     Indication: INFECTION
     Route: 042
  4. VANCOMYCIN [Suspect]
     Indication: INFECTION
     Route: 042

REACTIONS (5)
  - BACTERIAL INFECTION [None]
  - DRUG INEFFECTIVE [None]
  - MULTI-ORGAN FAILURE [None]
  - RESPIRATORY DISTRESS [None]
  - SEPTIC SHOCK [None]
